APPROVED DRUG PRODUCT: CILOSTAZOL
Active Ingredient: CILOSTAZOL
Strength: 50MG
Dosage Form/Route: TABLET;ORAL
Application: A077708 | Product #001
Applicant: SANKALP LIFECARE INC
Approved: Sep 28, 2009 | RLD: No | RS: No | Type: DISCN